FAERS Safety Report 5826878-2 (Version None)
Quarter: 2008Q3

REPORT INFORMATION
  Report Type: 
  Country: None (occurrence: None)
  Receive Date: 20080725
  Receipt Date: 20080723
  Transmission Date: 20090109
  Serious: Yes (Death, Life-Threatening, Disabling, Other)
  Sender: FDA-Public Use
  Company Number: 2008SP008977

PATIENT
  Age: 84 Year
  Sex: Male
  Weight: 59 kg

DRUGS (8)
  1. TEMODAL [Suspect]
     Indication: GLIOBLASTOMA MULTIFORME
     Dosage: 120 MG; QD; PO
     Route: 048
     Dates: start: 20080403, end: 20080423
  2. OPALMON (CON.) [Concomitant]
  3. TERNELIN (CON.) [Concomitant]
  4. EXCEGRAN (CON.) [Concomitant]
  5. GASTER D(CON.) [Concomitant]
  6. PANTOSIN (CON.) [Concomitant]
  7. MAGMITT (CON.) [Concomitant]
  8. BAKTAR (CON.) [Concomitant]

REACTIONS (22)
  - ABDOMINAL PAIN [None]
  - ANAEMIA [None]
  - ANOREXIA [None]
  - ASCITES [None]
  - BLOOD AMYLASE INCREASED [None]
  - BLOOD BETA-D-GLUCAN INCREASED [None]
  - BLOOD ELECTROLYTES ABNORMAL [None]
  - BLOOD PRESSURE DECREASED [None]
  - BLOOD UREA INCREASED [None]
  - C-REACTIVE PROTEIN INCREASED [None]
  - DIARRHOEA [None]
  - DISSEMINATED INTRAVASCULAR COAGULATION [None]
  - GASTROINTESTINAL DISORDER [None]
  - GASTROINTESTINAL MUCOSAL DISORDER [None]
  - HEPATIC FUNCTION ABNORMAL [None]
  - HYPOPROTEINAEMIA [None]
  - INFECTION [None]
  - LYMPHOCYTE COUNT DECREASED [None]
  - MELAENA [None]
  - NAUSEA [None]
  - PLATELET COUNT DECREASED [None]
  - WHITE BLOOD CELL COUNT INCREASED [None]
